FAERS Safety Report 5570243-2 (Version None)
Quarter: 2007Q4

REPORT INFORMATION
  Report Type: 
  Country: None (occurrence: None)
  Receive Date: 20071219
  Receipt Date: 20071211
  Transmission Date: 20080405
  Serious: Yes (Other)
  Sender: FDA-Public Use
  Company Number: 2007337466

PATIENT
  Age: 40 Year
  Sex: Female
  Weight: 63.9572 kg

DRUGS (2)
  1. LISTERINE VANILLA MINT (MENTHOL, METHYL SALICYLATE, EUCALYPTOL, THYMOL [Suspect]
     Indication: DENTAL DISORDER PROPHYLAXIS
     Dosage: ORAL
     Route: 048
     Dates: start: 20070101, end: 20070101
  2. MULTIVITAMIN [Concomitant]

REACTIONS (6)
  - CHAPPED LIPS [None]
  - CHEILITIS [None]
  - HYPOAESTHESIA ORAL [None]
  - LIP EXFOLIATION [None]
  - PRURITUS [None]
  - THERMAL BURN [None]
